FAERS Safety Report 7557490-5 (Version None)
Quarter: 2011Q2

REPORT INFORMATION
  Report Type: 
  Country: None (occurrence: None)
  Receive Date: 20110610
  Receipt Date: 20110531
  Transmission Date: 20111010
  Serious: Yes (Disabling, Other)
  Sender: FDA-Public Use
  Company Number: ACO_25027_2011

PATIENT
  Age: 52 Year
  Sex: Male

DRUGS (3)
  1. AMPYRA [Suspect]
     Indication: GAIT DISTURBANCE
     Dosage: 10 MG, ORAL
     Route: 048
     Dates: start: 20100101
  2. AMPYRA [Suspect]
     Indication: GAIT DISTURBANCE
     Dosage: 10 MG, ORAL
     Route: 048
     Dates: start: 20100401, end: 20100101
  3. TYSABRI [Concomitant]

REACTIONS (2)
  - ABASIA [None]
  - DRUG INEFFECTIVE [None]
